FAERS Safety Report 7422917-6 (Version None)
Quarter: 2011Q2

REPORT INFORMATION
  Report Type: 
  Country: None (occurrence: None)
  Receive Date: 20110414
  Receipt Date: 20110414
  Transmission Date: 20111010
  Serious: Yes (Life-Threatening, Hospitalization)
  Sender: FDA-Public Use
  Company Number: None

PATIENT
  Age: 27 Year
  Sex: Male
  Weight: 80.7403 kg

DRUGS (1)
  1. REGLAN [Suspect]
     Indication: NAUSEA
     Dosage: 10MG 2 PO
     Route: 048
     Dates: start: 20110403, end: 20110403

REACTIONS (14)
  - BRUXISM [None]
  - INFLUENZA LIKE ILLNESS [None]
  - DYSPHAGIA [None]
  - SWOLLEN TONGUE [None]
  - PHARYNGEAL OEDEMA [None]
  - GASTROENTERITIS [None]
  - TRISMUS [None]
  - HYPERVENTILATION [None]
  - CHOKING [None]
  - MUSCULOSKELETAL STIFFNESS [None]
  - TOOTH DISORDER [None]
  - DEHYDRATION [None]
  - DYSPNOEA [None]
  - MOTOR DYSFUNCTION [None]
